FAERS Safety Report 4312893-7 (Version None)
Quarter: 2004Q1

REPORT INFORMATION
  Report Type: 
  Country: None (occurrence: None)
  Receive Date: 20040302
  Receipt Date: 20031027
  Transmission Date: 20041129
  Serious: No
  Sender: FDA-Public Use
  Company Number: WAES 0310USA02976

PATIENT
  Sex: Female

DRUGS (2)
  1. CANCIDAS [Suspect]
     Indication: LIVER TRANSPLANT
     Dosage: 35 MG/DAILY/IV
     Route: 042
  2. CANCIDAS [Suspect]
     Indication: PROPHYLAXIS
     Dosage: 35 MG/DAILY/IV
     Route: 042

REACTIONS (1)
  - CANDIDIASIS [None]
